FAERS Safety Report 18108637 (Version 2)
Quarter: 2020Q4

REPORT INFORMATION
  Report Type: Spontaneous
  Country: JP (occurrence: JP)
  Receive Date: 20200803
  Receipt Date: 20201127
  Transmission Date: 20210113
  Serious: Yes (Death, Hospitalization, Other)
  Sender: FDA-Public Use
  Company Number: JP-AMGEN-JPNNI2019184375

PATIENT
  Age: 43 Year
  Sex: Male

DRUGS (2)
  1. RANMARK [Suspect]
     Active Substance: DENOSUMAB
     Indication: BONE GIANT CELL TUMOUR
     Dosage: 120 MILLIGRAM
     Route: 058
     Dates: start: 20140813, end: 20190605
  2. DENOTAS [Concomitant]
     Active Substance: CALCIUM CARBONATE\CHOLECALCIFEROL\MAGNESIUM CARBONATE
     Dosage: 2 DOSAGE FORM, QD
     Route: 048
     Dates: start: 20140813, end: 20190629

REACTIONS (6)
  - Hepatic function abnormal [Recovered/Resolved]
  - Deep vein thrombosis [Not Recovered/Not Resolved]
  - Aspartate aminotransferase increased [Not Recovered/Not Resolved]
  - Disease progression [Fatal]
  - Pulmonary embolism [Not Recovered/Not Resolved]
  - Congestive hepatopathy [Recovering/Resolving]

NARRATIVE: CASE EVENT DATE: 201904
